FAERS Safety Report 7522425-8 (Version None)
Quarter: 2011Q2

REPORT INFORMATION
  Report Type: 
  Country: None (occurrence: None)
  Receive Date: 20110525
  Receipt Date: 20110516
  Transmission Date: 20111010
  Serious: Yes (Other)
  Sender: FDA-Public Use
  Company Number: US-001742

PATIENT
  Sex: Female
  Weight: 38.1022 kg

DRUGS (4)
  1. PROTEINS NOS [Concomitant]
  2. NUTRIENTS WITHOUT PHENYLALANINE [Concomitant]
  3. KUVAN [Suspect]
     Indication: PHENYLKETONURIA
     Dosage: )DOSE AND FREQUENCY NOT REPORTED ORAL) ; (400 MG QD ORAL)
     Route: 048
     Dates: start: 20101201
  4. KUVAN [Suspect]
     Indication: PHENYLKETONURIA
     Dosage: )DOSE AND FREQUENCY NOT REPORTED ORAL) ; (400 MG QD ORAL)
     Route: 048
     Dates: start: 20090801

REACTIONS (1)
  - NEPHROLITHIASIS [None]
